FAERS Safety Report 16469578 (Version 2)
Quarter: 2019Q3

REPORT INFORMATION
  Report Type: Spontaneous
  Country: US (occurrence: US)
  Receive Date: 20190624
  Receipt Date: 20190703
  Transmission Date: 20191004
  Serious: No
  Sender: FDA-Public Use
  Company Number: US-SA-2019SA167035

PATIENT
  Age: 69 Year
  Sex: Female

DRUGS (2)
  1. PRALUENT [Suspect]
     Active Substance: ALIROCUMAB
     Indication: BLOOD CHOLESTEROL
     Dosage: 150 MG
     Dates: start: 20190508
  2. PRALUENT [Suspect]
     Active Substance: ALIROCUMAB
     Dosage: 150 MG, QOW
     Dates: start: 20190509

REACTIONS (5)
  - Injection site swelling [Not Recovered/Not Resolved]
  - Therapeutic response unexpected [Unknown]
  - Extra dose administered [Unknown]
  - Injection site erythema [Not Recovered/Not Resolved]
  - Injection site rash [Unknown]
